FAERS Safety Report 12361175 (Version 3)
Quarter: 2016Q3

REPORT INFORMATION
  Report Type: Spontaneous
  Country: US (occurrence: US)
  Receive Date: 20160512
  Receipt Date: 20160801
  Transmission Date: 20161109
  Serious: Yes (Hospitalization, Other)
  Sender: FDA-Public Use
  Company Number: US-ACTAVIS-2016-09069

PATIENT
  Age: 39 Year
  Sex: Female
  Weight: 62.58 kg

DRUGS (1)
  1. SORIATANE [Suspect]
     Active Substance: ACITRETIN
     Indication: KERATOSIS FOLLICULAR
     Dosage: UNK
     Route: 048
     Dates: start: 200710

REACTIONS (5)
  - Condition aggravated [Unknown]
  - Skin disorder [Unknown]
  - Pain of skin [Unknown]
  - Drug dose omission [Unknown]
  - Pruritus [Unknown]

NARRATIVE: CASE EVENT DATE: 201603
